FAERS Safety Report 6102978-7 (Version None)
Quarter: 2009Q1

REPORT INFORMATION
  Report Type: 
  Country: None (occurrence: None)
  Receive Date: 20090305
  Receipt Date: 20090223
  Transmission Date: 20090719
  Serious: Yes (Other)
  Sender: FDA-Public Use
  Company Number: PHEH2009US01959

PATIENT
  Sex: Female

DRUGS (1)
  1. RECLAST [Suspect]
     Dosage: UNK
     Dates: start: 20090101

REACTIONS (4)
  - DENTAL CLEANING [None]
  - INFLUENZA LIKE ILLNESS [None]
  - MASTICATION DISORDER [None]
  - TOOTH DISORDER [None]
